FAERS Safety Report 26048531 (Version 2)
Quarter: 2025Q4

REPORT INFORMATION
  Report Type: Report from Study
  Country: US (occurrence: US)
  Receive Date: 20251114
  Receipt Date: 20251212
  Transmission Date: 20260117
  Serious: Yes (Hospitalization)
  Sender: MARINUS PHARMACEUTICALS
  Company Number: US-MARINUS PHARMACEUTICALS, INC.-MAR2025000280

PATIENT

DRUGS (6)
  1. GANAXOLONE [Suspect]
     Active Substance: GANAXOLONE
     Indication: CDKL5 deficiency disorder
     Dosage: 12 MILLIGRAM, TID
     Route: 048
  2. CLONAZEPAM [Concomitant]
     Active Substance: CLONAZEPAM
  3. LEVETIRACETAM [Concomitant]
     Active Substance: LEVETIRACETAM
  4. FELBATOL [Concomitant]
     Active Substance: FELBAMATE
  5. FYCOMPA [Concomitant]
     Active Substance: PERAMPANEL
  6. EPIDIOLEX [Concomitant]
     Active Substance: CANNABIDIOL

REACTIONS (2)
  - Aspiration [Unknown]
  - Weight decreased [Unknown]

NARRATIVE: CASE EVENT DATE: 20250101
